FAERS Safety Report 15305441 (Version 1)
Quarter: 2018Q3

REPORT INFORMATION
  Report Type: Spontaneous
  Country: GB (occurrence: GB)
  Receive Date: 20180822
  Receipt Date: 20180822
  Transmission Date: 20181010
  Serious: Yes (Other)
  Sender: FDA-Public Use
  Company Number: GB-TEVA-2018-GB-946049

PATIENT
  Age: 68 Year
  Sex: Male
  Weight: 100 kg

DRUGS (19)
  1. FUROSEMIDE. [Concomitant]
     Active Substance: FUROSEMIDE
     Dosage: 1 DOSAGE FORMS DAILY; EACH MORNING
     Dates: start: 20171122
  2. ACETYLSALICYLIC ACID [Concomitant]
     Active Substance: ASPIRIN
     Dosage: 1 DOSAGE FORMS DAILY; EACH MORNING
     Dates: start: 20180124
  3. LANSOPRAZOLE. [Concomitant]
     Active Substance: LANSOPRAZOLE
     Dosage: 1 DOSAGE FORMS DAILY; TAKE ONE TABLET UP TO TWO TIMES DAILY
     Dates: start: 20171128
  4. PARACETAMOL [Concomitant]
     Active Substance: ACETAMINOPHEN
     Dosage: 8 DOSAGE FORMS DAILY;
     Dates: start: 20171122
  5. ATORVASTATIN [Concomitant]
     Active Substance: ATORVASTATIN
     Dosage: 1 DOSAGE FORMS DAILY; AT NIGHT
     Dates: start: 20171122
  6. BISOPROLOL [Concomitant]
     Active Substance: BISOPROLOL
     Dosage: 1 DOSAGE FORMS DAILY; IN THE MORNING
     Dates: start: 20171128
  7. GLYCERYL TRINITRATE [Concomitant]
     Active Substance: NITROGLYCERIN
     Dosage: SPRAY ONE PUFF UNDER THE TONGUE
     Route: 060
     Dates: start: 20171122
  8. DULOXETINE. [Concomitant]
     Active Substance: DULOXETINE
     Dosage: 1 DOSAGE FORMS DAILY; EACH MORNING
     Dates: start: 20171122
  9. PRASUGREL. [Concomitant]
     Active Substance: PRASUGREL
     Dosage: 1 DOSAGE FORMS DAILY; EACH MORNING UNTIL DECEMBER 2018
     Dates: start: 20171128
  10. MORPHINE SULFATE. [Suspect]
     Active Substance: MORPHINE SULFATE
     Dates: start: 20171122
  11. MAGNESIUM GLYCEROPHOSPHATE [Concomitant]
     Active Substance: MAGNESIUM GLYCEROPHOSPHATE
     Dosage: 2 DOSAGE FORMS DAILY; TAKE ONE AT LUNCH AND ONE EACH EVENING
     Dates: start: 20171122
  12. CEFALEXIN [Concomitant]
     Active Substance: CEPHALEXIN
     Dosage: ON ALTERNATE NIGHTS TO PREVENT URINE...
     Dates: start: 20171122, end: 20180727
  13. COLCHICINE. [Concomitant]
     Active Substance: COLCHICINE
     Dosage: TAKE ONE TABLET TWO TO FOUR TIMES DAILY UNTIL S...
     Dates: start: 20171122, end: 20180727
  14. LOSARTAN. [Concomitant]
     Active Substance: LOSARTAN
     Dosage: 1 DOSAGE FORMS DAILY; EACH  MORNING
     Dates: start: 20171122
  15. FEBUXOSTAT. [Concomitant]
     Active Substance: FEBUXOSTAT
     Dosage: 1 DOSAGE FORMS DAILY; AT LUNCH
     Dates: start: 20171122
  16. CALCIUM CARBONATE. [Concomitant]
     Active Substance: CALCIUM CARBONATE
     Dosage: 2 DOSAGE FORMS DAILY; TAKE ONE AT LUNCH AND ONE EACH EVENING
     Dates: start: 20171122
  17. CODEINE PHOSPHATE [Concomitant]
     Active Substance: CODEINE PHOSPHATE
     Dosage: TAKE ONE OR TWO TABLETS UP TO FOUR TIMES DAILY ...
     Dates: start: 20171122
  18. PREDNISOLONE. [Concomitant]
     Active Substance: PREDNISOLONE
     Dosage: 1 DOSAGE FORMS DAILY; EACH MORNING
     Dates: start: 20171122
  19. LEVOTHYROXINE. [Concomitant]
     Active Substance: LEVOTHYROXINE
     Dosage: 1 DOSAGE FORMS DAILY; EACH MORNING
     Dates: start: 20171128

REACTIONS (1)
  - Acute kidney injury [Recovered/Resolved]

NARRATIVE: CASE EVENT DATE: 20180727
